FAERS Safety Report 8115823-5 (Version None)
Quarter: 2012Q1

REPORT INFORMATION
  Report Type: 
  Country: None (occurrence: None)
  Receive Date: 20120206
  Receipt Date: 20120124
  Transmission Date: 20120608
  Serious: Yes (Other)
  Sender: FDA-Public Use
  Company Number: FR-ELI_LILLY_AND_COMPANY-FR201110006346

PATIENT
  Age: 52 Year
  Sex: Female
  Weight: 41 kg

DRUGS (8)
  1. HUMIRA [Concomitant]
     Indication: CROHN'S DISEASE
     Dosage: UNK
     Route: 058
     Dates: start: 20100101
  2. EFFERALGAN                         /00020001/ [Concomitant]
     Dosage: UNK
     Route: 048
  3. CALCIUM CARBONATE [Concomitant]
     Indication: OSTEOPOROSIS
     Dosage: 1 DF, QD
  4. FORTEO [Suspect]
     Dosage: 20 UG, QD
     Route: 058
  5. FORTEO [Suspect]
     Indication: OSTEOPOROSIS
     Dosage: 20 UG, QD
     Route: 058
     Dates: start: 20111019, end: 20111022
  6. OMEPRAZOLE [Concomitant]
     Dosage: 1 DF, QD
     Route: 048
  7. PREDNISONE TAB [Concomitant]
     Dosage: 15 MG, QD
     Route: 048
  8. URSOLVAN [Concomitant]
     Route: 048

REACTIONS (4)
  - HYPERHIDROSIS [None]
  - VOMITING [None]
  - SYNCOPE [None]
  - DEPRESSED LEVEL OF CONSCIOUSNESS [None]
